FAERS Safety Report 8265747-8 (Version None)
Quarter: 2012Q2

REPORT INFORMATION
  Report Type: 
  Country: None (occurrence: None)
  Receive Date: 20120403
  Receipt Date: 20120319
  Transmission Date: 20120825
  Serious: Yes (Death, Hospitalization)
  Sender: FDA-Public Use
  Company Number: DSM-2012-00353

PATIENT
  Age: 79 Year
  Sex: Male

DRUGS (5)
  1. SIMVASTATINE SANDOZ (SIMVASTATIN) (40 MILLIGRAM, TABLET)(SIMVASTATIN) [Concomitant]
  2. OLMESARTAN MEDOXOMIL [Suspect]
     Indication: PRODUCT USED FOR UNKNOWN INDICATION
     Dosage: 20 MG (20 MG, 1 IN 1 D),ORAL
     Route: 048
  3. CELEBREX [Suspect]
     Indication: ARTHRALGIA
     Dosage: 100 MG (100 MG, 1 IN 1 D).ORAL
     Route: 048
     Dates: start: 20120125, end: 20120209
  4. DELURSAN (URSODEOXYCHOLIC ACID)(250 MILLIGRAM, TABLET)(URSODEOXYCHOLIC [Concomitant]
  5. KARDEGIC (ACETYLSALICYLATE LYSINE) (75 MILLIGRAM)(ACETYLSALICYLATE LYS [Suspect]
     Indication: PRODUCT USED FOR UNKNOWN INDICATION
     Dosage: 75 MG (75 MG, 1 IN 1 D) ,ORAL
     Route: 048

REACTIONS (12)
  - DISTURBANCE IN ATTENTION [None]
  - GASTRIC ULCER [None]
  - MELAENA [None]
  - MULTI-ORGAN FAILURE [None]
  - ARTHRALGIA [None]
  - HEPATIC FAILURE [None]
  - LIVER DISORDER [None]
  - HYPOTENSION [None]
  - ANURIA [None]
  - RENAL FAILURE ACUTE [None]
  - LIVEDO RETICULARIS [None]
  - HAEMODIALYSIS [None]
